FAERS Safety Report 14785152 (Version 1)
Quarter: 2018Q2

REPORT INFORMATION
  Report Type: Other
  Country: US (occurrence: US)
  Receive Date: 20180420
  Receipt Date: 20180420
  Transmission Date: 20180711
  Serious: Yes (Death)
  Sender: FDA-Public Use
  Company Number: US-LEADING PHARMA-2046165

PATIENT
  Age: 74 Year
  Sex: Male
  Weight: 82.27 kg

DRUGS (1)
  1. FOLIC ACID. [Suspect]
     Active Substance: FOLIC ACID
     Route: 048

REACTIONS (1)
  - Temperature regulation disorder [Fatal]
